FAERS Safety Report 9357513 (Version 1)
Quarter: 2013Q2

REPORT INFORMATION
  Report Type: Spontaneous
  Country: BR (occurrence: BR)
  Receive Date: 20130620
  Receipt Date: 20130620
  Transmission Date: 20140414
  Serious: Yes (Other)
  Sender: FDA-Public Use
  Company Number: PHHY2013BR062782

PATIENT
  Age: 82 Year
  Sex: Male
  Weight: 80 kg

DRUGS (11)
  1. EXELON PATCH [Suspect]
     Indication: VASCULAR DEMENTIA
     Dosage: 4.6 MG, DAILY
     Route: 062
  2. EXELON PATCH [Suspect]
     Dosage: 9.5 MG, DAILY
     Route: 062
     Dates: start: 20130612, end: 20130614
  3. SERTRALINE [Concomitant]
     Indication: DEPRESSION
     Dosage: 50 MG, A DAY
     Route: 048
  4. ATORVASTATIN CALCIUM [Concomitant]
     Indication: BONE DISORDER
     Dosage: 20 MG, AT NIGHT
     Dates: start: 2011
  5. ATORVASTATIN CALCIUM [Concomitant]
     Indication: CARDIOVASCULAR DISORDER
  6. DAONIL [Concomitant]
     Indication: DIABETES MELLITUS
     Dosage: 1 DF DAILY
     Route: 048
  7. ARTROLIVE [Concomitant]
     Indication: PAIN IN EXTREMITY
     Dosage: UNK UKN, UNK
  8. ARTROLIVE [Concomitant]
     Indication: OSTEOARTHRITIS
  9. ADDERA D3 [Concomitant]
     Dosage: UNK UKN, UNK
  10. AMLODIPINE [Concomitant]
     Dosage: UNK UKN, UNK
  11. CLOPIDOGREL [Concomitant]

REACTIONS (1)
  - Blood urine [Recovered/Resolved]
